FAERS Safety Report 8961619 (Version 1)
Quarter: 2012Q4

REPORT INFORMATION
  Report Type: 
  Country: US (occurrence: US)
  Receive Date: 20121213
  Receipt Date: 20121213
  Transmission Date: 20130627
  Serious: No
  Sender: FDA-Public Use
  Company Number: US-ALLERGAN-1214428US

PATIENT
  Age: 65 Year
  Sex: Female

DRUGS (6)
  1. LUMIGAN� 0.01% [Suspect]
     Indication: INCREASED INTRAOCULAR PRESSURE
     Dosage: 2 Gtt, qhs
     Route: 047
     Dates: start: 201209
  2. SYNTHROID [Concomitant]
     Indication: DRUG USE FOR UNKNOWN INDICATION
  3. TIZANIDINE [Concomitant]
     Indication: DRUG USE FOR UNKNOWN INDICATION
  4. VITAMINS [Concomitant]
     Indication: DRUG USE FOR UNKNOWN INDICATION
  5. SYSTANE PRESERVATIVE FREE [Concomitant]
     Indication: DRUG USE FOR UNKNOWN INDICATION
  6. SYSTANE ULTRA [Concomitant]
     Indication: DRUG USE FOR UNKNOWN INDICATION

REACTIONS (6)
  - Headache [Recovered/Resolved]
  - Nausea [Recovered/Resolved]
  - Ear pain [Recovered/Resolved]
  - Malaise [Recovered/Resolved]
  - Eye pain [Recovered/Resolved]
  - Eye irritation [Recovered/Resolved]
